FAERS Safety Report 7015729-9 (Version None)
Quarter: 2010Q3

REPORT INFORMATION
  Report Type: 
  Country: None (occurrence: None)
  Receive Date: 20100927
  Receipt Date: 20100506
  Transmission Date: 20110219
  Serious: No
  Sender: FDA-Public Use
  Company Number: US-ASTRAZENECA-2005UW04253

PATIENT
  Age: 71 Year
  Sex: Female
  Weight: 96.6 kg

DRUGS (4)
  1. ARIMIDEX [Suspect]
     Indication: BREAST CANCER
     Route: 048
     Dates: start: 20040101, end: 20100401
  2. ARIMIDEX [Suspect]
     Route: 048
     Dates: start: 20100401, end: 20100506
  3. XALATAN [Concomitant]
  4. ACTONEL [Concomitant]

REACTIONS (3)
  - ARTHRALGIA [None]
  - HYPOAESTHESIA [None]
  - INCORRECT DOSE ADMINISTERED [None]
